FAERS Safety Report 8788725 (Version 2)
Quarter: 2012Q4

REPORT INFORMATION
  Report Type: 
  Country: BR (occurrence: BR)
  Receive Date: 20120917
  Receipt Date: 20120923
  Transmission Date: 20130627
  Serious: Yes (Death, Hospitalization)
  Sender: FDA-Public Use
  Company Number: BR-AMGEN-BRASP2012058203

PATIENT
  Age: 84 Year
  Sex: Female

DRUGS (5)
  1. PROLIA [Suspect]
     Indication: OSTEOPOROSIS
     Dosage: 1AMP See dosage text
     Route: 042
     Dates: start: 20120801, end: 20120801
  2. HYDROXYCHLOROQUINE [Concomitant]
     Dosage: 200 mg, UNK
  3. DEFLAZACORT [Concomitant]
     Dosage: 7.5 mg, UNK
  4. CALCIUM + VITAMIN D [Concomitant]
     Dosage: UNK
  5. ALENDRONATE [Concomitant]
     Dosage: 70 mg, UNK

REACTIONS (6)
  - Death [Fatal]
  - Demyelination [Unknown]
  - Pneumonia [Unknown]
  - Cough [Unknown]
  - Quadriparesis [Recovered/Resolved]
  - Pain in extremity [Unknown]
